FAERS Safety Report 9696870 (Version 1)
Quarter: 2013Q4

REPORT INFORMATION
  Report Type: Spontaneous
  Country: US (occurrence: US)
  Receive Date: 20131119
  Receipt Date: 20131119
  Transmission Date: 20140711
  Serious: No
  Sender: FDA-Public Use
  Company Number: US-GILEAD-2007-0013700

PATIENT
  Age: 62 Year
  Sex: Female
  Weight: 88 kg

DRUGS (11)
  1. LETAIRIS [Suspect]
     Indication: PULMONARY ARTERIAL HYPERTENSION
     Route: 048
     Dates: start: 20070719
  2. TRACLEER [Concomitant]
     Indication: PULMONARY ARTERIAL HYPERTENSION
     Route: 048
  3. SINGULAIR [Concomitant]
     Route: 048
  4. XANAX [Concomitant]
     Route: 048
  5. AMOXIL [Concomitant]
     Route: 048
  6. COUMADIN [Concomitant]
     Route: 048
  7. ALBUTEROL [Concomitant]
     Route: 045
  8. NEXIUM [Concomitant]
     Route: 048
  9. ADVAIR [Concomitant]
     Route: 055
  10. TYLENOL [Concomitant]
     Route: 048
  11. CALCIUM + D [Concomitant]
     Route: 048

REACTIONS (1)
  - Headache [Unknown]
